FAERS Safety Report 9074431 (Version 1)
Quarter: 2013Q1

REPORT INFORMATION
  Report Type: Report from Study
  Country: US (occurrence: US)
  Receive Date: 20130129
  Receipt Date: 20130129
  Transmission Date: 20140127
  Serious: No
  Sender: FDA-Public Use
  Company Number: US-ABBOTT-12P-163-0931113-00

PATIENT
  Age: 24 Year
  Sex: Female

DRUGS (4)
  1. HUMIRA 40 MG/0.8 ML PEN [Suspect]
     Indication: PSORIASIS
  2. ZOLOFT [Suspect]
     Indication: ANXIETY
  3. PROZAC [Concomitant]
     Indication: ANXIETY
     Dosage: 10 MG DAILY
     Dates: start: 2012
  4. BIRTH CONTROL PILLS [Concomitant]
     Indication: PRODUCT USED FOR UNKNOWN INDICATION

REACTIONS (4)
  - Weight increased [Recovered/Resolved]
  - Hypoglycaemia [Unknown]
  - Fatigue [Unknown]
  - Joint injury [Unknown]
